FAERS Safety Report 13259036 (Version 1)
Quarter: 2017Q1

REPORT INFORMATION
  Report Type: Report from Study
  Country: None (occurrence: BR)
  Receive Date: 20170222
  Receipt Date: 20170222
  Transmission Date: 20170428
  Serious: Yes (Other)
  Sender: FDA-Public Use
  Company Number: BR-ABBVIE-17P-020-1879299-00

PATIENT
  Sex: Male

DRUGS (1)
  1. HUMIRA [Suspect]
     Active Substance: ADALIMUMAB
     Indication: PSORIATIC ARTHROPATHY
     Route: 058
     Dates: start: 20130701

REACTIONS (6)
  - Visual impairment [Unknown]
  - Cataract [Unknown]
  - Malaise [Unknown]
  - Pain [Unknown]
  - Gallbladder disorder [Unknown]
  - Unevaluable event [Unknown]
